FAERS Safety Report 7546796-1 (Version None)
Quarter: 2011Q2

REPORT INFORMATION
  Report Type: 
  Country: None (occurrence: None)
  Receive Date: 20110614
  Receipt Date: 20110531
  Transmission Date: 20111010
  Serious: Yes (Death)
  Sender: FDA-Public Use
  Company Number: JP-JNJFOC-20110309289

PATIENT
  Sex: Male
  Weight: 62 kg

DRUGS (7)
  1. REMICADE [Suspect]
     Route: 042
     Dates: start: 20100928
  2. REMICADE [Suspect]
     Route: 042
     Dates: start: 20100917
  3. REMICADE [Suspect]
     Indication: INTERSTITIAL LUNG DISEASE
     Route: 042
     Dates: start: 20100928
  4. REMICADE [Suspect]
     Indication: PUSTULAR PSORIASIS
     Route: 042
     Dates: start: 20101101
  5. PREDNISOLONE [Concomitant]
     Indication: INTERSTITIAL LUNG DISEASE
     Route: 048
     Dates: start: 20100215, end: 20101118
  6. REMICADE [Suspect]
     Route: 042
     Dates: start: 20100917
  7. REMICADE [Suspect]
     Route: 042
     Dates: start: 20101101

REACTIONS (1)
  - INTERSTITIAL LUNG DISEASE [None]
